FAERS Safety Report 9961454 (Version 2)
Quarter: 2014Q2

REPORT INFORMATION
  Report Type: Report from Study
  Country: BR (occurrence: BR)
  Receive Date: 20140305
  Receipt Date: 20140506
  Transmission Date: 20141212
  Serious: Yes (Death, Hospitalization, Other)
  Sender: FDA-Public Use
  Company Number: PHHY2014BR026308

PATIENT
  Age: 76 Year
  Sex: Female
  Weight: 55 kg

DRUGS (4)
  1. ACLASTA [Suspect]
     Indication: OSTEOPOROSIS
     Dosage: 5 MG, UNK
     Route: 042
     Dates: start: 200702
  2. ACLASTA [Suspect]
     Dosage: 5 MG, UNK
     Route: 042
     Dates: start: 20130430, end: 20130430
  3. ZOMETA [Suspect]
     Indication: OSTEOPOROSIS
     Dosage: 4 MG, UNK
  4. ZOMETA [Suspect]
     Indication: OFF LABEL USE

REACTIONS (10)
  - Emphysema [Fatal]
  - Lung neoplasm malignant [Fatal]
  - Fall [Unknown]
  - Metastases to liver [Unknown]
  - Metastases to central nervous system [Unknown]
  - Peripheral vascular disorder [Unknown]
  - Ischaemia [Unknown]
  - Gait disturbance [Unknown]
  - Necrosis ischaemic [Unknown]
  - Leukaemia [Unknown]
